FAERS Safety Report 4920918-0 (Version None)
Quarter: 2006Q1

REPORT INFORMATION
  Report Type: 
  Country: None (occurrence: None)
  Receive Date: 20060223
  Receipt Date: 20051017
  Transmission Date: 20060701
  Serious: Yes (Hospitalization, Other)
  Sender: FDA-Public Use
  Company Number: US-MERCK-0510USA07750

PATIENT
  Age: 68 Year
  Sex: Female
  Weight: 84 kg

DRUGS (14)
  1. VIOXX [Suspect]
     Indication: ARTHRITIS
     Route: 048
     Dates: start: 20000201, end: 20040401
  2. CLARITIN [Concomitant]
     Indication: HYPERSENSITIVITY
     Route: 065
  3. DETROL [Concomitant]
     Indication: URINARY TRACT INFECTION
     Route: 065
  4. ULTRAM [Concomitant]
     Indication: ARTHRITIS
     Route: 065
  5. CIPRO [Concomitant]
     Route: 065
  6. TEMAZEPAM [Concomitant]
     Indication: ANXIETY
     Route: 065
  7. TEMAZEPAM [Concomitant]
     Indication: INSOMNIA
     Route: 065
  8. ROXICET [Concomitant]
     Indication: ARTHRITIS
     Route: 065
  9. CLORAZEPATE DIPOTASSIUM [Concomitant]
     Indication: ANXIETY
     Route: 065
  10. CLORAZEPATE DIPOTASSIUM [Concomitant]
     Indication: INSOMNIA
     Route: 065
  11. NITROFURANTOIN [Concomitant]
     Indication: URINARY TRACT INFECTION
     Route: 065
  12. GLUCOPHAGE [Concomitant]
     Indication: DIABETES MELLITUS INADEQUATE CONTROL
     Route: 065
  13. PREMPRO [Concomitant]
     Indication: HORMONE REPLACEMENT THERAPY
     Route: 065
     Dates: start: 20000101, end: 20030101
  14. PYRIDIUM [Concomitant]
     Indication: URINARY TRACT INFECTION
     Route: 065

REACTIONS (8)
  - ANAEMIA [None]
  - ARTHROPATHY [None]
  - BLOOD CHOLESTEROL INCREASED [None]
  - BREAST CANCER [None]
  - CEREBROVASCULAR ACCIDENT [None]
  - DEPRESSION [None]
  - GASTROOESOPHAGEAL REFLUX DISEASE [None]
  - HYPOXIA [None]
